FAERS Safety Report 7079562-4 (Version None)
Quarter: 2010Q4

REPORT INFORMATION
  Report Type: 
  Country: None (occurrence: None)
  Receive Date: 20101022
  Receipt Date: 20101006
  Transmission Date: 20110411
  Serious: Yes (Death, Hospitalization, Other)
  Sender: FDA-Public Use
  Company Number: 2010003077

PATIENT
  Age: 58 Year
  Sex: Male

DRUGS (9)
  1. ERLOTINIB HYDROCHLORIDE [Suspect]
     Indication: HEPATIC NEOPLASM MALIGNANT
     Dosage: 150 MG, QD, ORAL
     Route: 048
     Dates: start: 20100608, end: 20100630
  2. SORAFENIB [Suspect]
     Indication: HEPATIC NEOPLASM MALIGNANT
     Dosage: 800 MG, QD (400MG BID), ORAL
     Route: 048
     Dates: start: 20100608, end: 20100630
  3. SPIRONOLACTONE [Concomitant]
  4. RAMIPRIL [Concomitant]
  5. FOLIC ACID [Concomitant]
  6. INSULIN LISPRO (INSULIN LISPRO) [Concomitant]
  7. TRAMADOL HCL [Concomitant]
  8. METOCLOPRAMIDE [Concomitant]
  9. LOPERAMIDE HYDROCHLORIDE [Concomitant]

REACTIONS (2)
  - ENCEPHALOPATHY [None]
  - GASTROINTESTINAL HAEMORRHAGE [None]
